FAERS Safety Report 4596040-2 (Version None)
Quarter: 2005Q1

REPORT INFORMATION
  Report Type: 
  Country: None (occurrence: None)
  Receive Date: 20050224
  Receipt Date: 20050209
  Transmission Date: 20050727
  Serious: Yes (Death, Life-Threatening, Hospitalization)
  Sender: FDA-Public Use
  Company Number: EWC050142374

PATIENT
  Age: 66 Year
  Sex: Female

DRUGS (4)
  1. FORTEO [Suspect]
     Indication: OSTEOPOROSIS
     Dosage: 20 UG/1 DAY
     Dates: start: 20040606
  2. KALCIPOS-D [Concomitant]
  3. LEVAXIN (LEVOTHYROXINE SODIUM) [Concomitant]
  4. PREDNISOLON (PREDNISOLONE ACETATE) [Concomitant]

REACTIONS (6)
  - AORTIC DISSECTION [None]
  - AORTIC VALVE INCOMPETENCE [None]
  - CARDIAC ARREST [None]
  - LUNG CREPITATION [None]
  - MYOCARDIAL INFARCTION [None]
  - SHOCK [None]
